FAERS Safety Report 16115690 (Version 8)
Quarter: 2020Q2

REPORT INFORMATION
  Report Type: Report from Study
  Country: None (occurrence: US)
  Receive Date: 20190326
  Receipt Date: 20200610
  Transmission Date: 20200713
  Serious: Yes (Life-Threatening, Hospitalization, Other)
  Sender: FDA-Public Use
  Company Number: US-ABBVIE-19S-163-2708971-00

PATIENT
  Age: 75 Year
  Sex: Male
  Weight: 90.8 kg

DRUGS (73)
  1. DUOPA [Suspect]
     Active Substance: CARBIDOPA\LEVODOPA
     Route: 050
  2. VITAMIN C [Concomitant]
     Active Substance: ASCORBIC ACID
     Indication: VITAMIN SUPPLEMENTATION
  3. OMEGA 3 FISH OIL [Concomitant]
     Active Substance: FISH OIL\OMEGA-3 FATTY ACIDS
     Indication: SUPPLEMENTATION THERAPY
  4. ALOE LAX 225 [Concomitant]
     Indication: ABNORMAL FAECES
  5. FLUOCINONIDE. [Concomitant]
     Active Substance: FLUOCINONIDE
     Indication: DERMATITIS
  6. VITAMIN D [Concomitant]
     Active Substance: VITAMIN D NOS
     Indication: VITAMIN SUPPLEMENTATION
  7. PS 100 [Concomitant]
     Indication: DETOXIFICATION
  8. NUPLAZID [Suspect]
     Active Substance: PIMAVANSERIN TARTRATE
     Indication: PRODUCT USED FOR UNKNOWN INDICATION
     Route: 065
  9. TRULANCE [Concomitant]
     Active Substance: PLECANATIDE
     Indication: CONSTIPATION
  10. ANDROGEL [Concomitant]
     Active Substance: TESTOSTERONE
     Indication: OSTEOPOROSIS
  11. BIOTIN [Concomitant]
     Active Substance: BIOTIN
     Indication: VITAMIN SUPPLEMENTATION
  12. CLINDAMYCIN. [Concomitant]
     Active Substance: CLINDAMYCIN
     Indication: MILIARIA
  13. MAGNESIUM SULFATE. [Concomitant]
     Active Substance: MAGNESIUM SULFATE
     Indication: MINERAL SUPPLEMENTATION
  14. MIRALAX [Concomitant]
     Active Substance: POLYETHYLENE GLYCOL 3350
     Indication: ABNORMAL FAECES
  15. TRULANCE [Concomitant]
     Active Substance: PLECANATIDE
     Indication: HALLUCINATION
  16. TRULANCE [Concomitant]
     Active Substance: PLECANATIDE
     Indication: BOWEL PREPARATION
  17. OREGACILLIN [Concomitant]
     Indication: ANTIBIOTIC THERAPY
  18. HLC PROBIOTIC [Concomitant]
     Indication: ORAL BACTERIAL INFECTION
  19. PROBIOMES DDS [Concomitant]
     Indication: ORAL BACTERIAL INFECTION
  20. BIOCIDIN [Concomitant]
     Indication: BLADDER DISORDER
  21. DUOPA [Suspect]
     Active Substance: CARBIDOPA\LEVODOPA
     Route: 050
  22. CARBIDOPA LEVODOPA [Concomitant]
     Active Substance: CARBIDOPA\LEVODOPA
     Indication: PARKINSON^S DISEASE
  23. COLACE [Concomitant]
     Active Substance: DOCUSATE SODIUM
     Indication: CONSTIPATION PROPHYLAXIS
  24. PROBIOTICS [Concomitant]
     Active Substance: PROBIOTICS NOS
     Indication: PROBIOTIC THERAPY
  25. EXELON PATCH [Concomitant]
     Active Substance: RIVASTIGMINE
     Indication: DEMENTIA
  26. ANDROGEL [Concomitant]
     Active Substance: TESTOSTERONE
     Indication: SKIN DISORDER
  27. VITALZYM [Concomitant]
     Indication: ENZYME SUPPLEMENTATION
  28. MAGNESIUM CITRATE. [Concomitant]
     Active Substance: MAGNESIUM CITRATE
     Indication: BOWEL PREPARATION
  29. MITOX [Concomitant]
     Indication: PRODUCT USED FOR UNKNOWN INDICATION
  30. MILK OF MAGNESIA [Concomitant]
     Active Substance: MAGNESIUM HYDROXIDE
     Indication: ABNORMAL FAECES
  31. LOTRIMIN [Concomitant]
     Active Substance: CLOTRIMAZOLE
     Indication: FUNGAL INFECTION
  32. VITAL REDS [Concomitant]
     Indication: SUPPLEMENTATION THERAPY
  33. IPRATROPIUM BROMIDE. [Concomitant]
     Active Substance: IPRATROPIUM BROMIDE
     Indication: PRODUCT USED FOR UNKNOWN INDICATION
  34. PROBIOTICS [Concomitant]
     Active Substance: PROBIOTICS NOS
     Indication: ABNORMAL FAECES
  35. MELATONIN [Concomitant]
     Active Substance: MELATONIN
     Indication: INSOMNIA
  36. PROLIA [Concomitant]
     Active Substance: DENOSUMAB
     Indication: OSTEOPOROSIS
  37. GLUTATHIONE [Concomitant]
     Active Substance: GLUTATHIONE
     Indication: DETOXIFICATION
  38. ALOE LAX 225 [Concomitant]
     Indication: BOWEL PREPARATION
  39. DUAL-TOX DPO [Concomitant]
     Indication: DETOXIFICATION
  40. PHOSPHATIDYLCHOLINE [Concomitant]
     Active Substance: LECITHIN
     Indication: NUTRITIONAL SUPPLEMENTATION
  41. BIOCIDIN [Concomitant]
     Indication: PROPHYLAXIS URINARY TRACT INFECTION
  42. VENOFIBER [Concomitant]
     Indication: GASTROINTESTINAL DISORDER
  43. ALOE VERA GEL [Concomitant]
     Active Substance: ALOE VERA LEAF
     Indication: ABNORMAL FAECES
  44. COD LIVER OIL [Concomitant]
     Active Substance: COD LIVER OIL
     Indication: PRODUCT USED FOR UNKNOWN INDICATION
  45. FINASTERIDE. [Concomitant]
     Active Substance: FINASTERIDE
     Indication: BENIGN PROSTATIC HYPERPLASIA
  46. MIRALAX [Concomitant]
     Active Substance: POLYETHYLENE GLYCOL 3350
     Indication: INTESTINAL OBSTRUCTION
  47. MIRALAX [Concomitant]
     Active Substance: POLYETHYLENE GLYCOL 3350
     Indication: CONSTIPATION
  48. D-MANNOSE [Concomitant]
     Indication: PROPHYLAXIS URINARY TRACT INFECTION
  49. SODIUM BICARBONATE. [Concomitant]
     Active Substance: SODIUM BICARBONATE
     Indication: ALLERGY TO ANIMAL
  50. OREGACILLIN [Concomitant]
     Indication: ANTIBIOTIC THERAPY
  51. PROBUTARATE [Concomitant]
     Indication: BLADDER DISORDER
  52. D-MANNOSE [Concomitant]
     Indication: BLADDER DISORDER
  53. VITAMIN E [Concomitant]
     Active Substance: .ALPHA.-TOCOPHEROL
     Indication: VITAMIN SUPPLEMENTATION
  54. LOVENOX [Concomitant]
     Active Substance: ENOXAPARIN SODIUM
     Indication: PROPHYLAXIS
  55. SEROQUEL [Concomitant]
     Active Substance: QUETIAPINE FUMARATE
     Indication: SLEEP DISORDER
  56. ZINC. [Concomitant]
     Active Substance: ZINC
     Indication: MINERAL SUPPLEMENTATION
  57. BENEFIBER [Concomitant]
     Active Substance: STARCH, WHEAT
     Indication: BOWEL PREPARATION
  58. COCONUT OIL [Concomitant]
     Active Substance: COCONUT OIL
     Indication: PRODUCT USED FOR UNKNOWN INDICATION
  59. ZEASORB [Concomitant]
     Active Substance: MICONAZOLE NITRATE
     Indication: MILIARIA
  60. AMOXICILLIN. [Concomitant]
     Active Substance: AMOXICILLIN
     Indication: PRODUCT USED FOR UNKNOWN INDICATION
  61. ALBUTEROL. [Concomitant]
     Active Substance: ALBUTEROL
     Indication: PRODUCT USED FOR UNKNOWN INDICATION
  62. ALOE VERA GEL [Concomitant]
     Active Substance: ALOE VERA LEAF
     Indication: BOWEL PREPARATION
  63. SEROQUEL [Concomitant]
     Active Substance: QUETIAPINE FUMARATE
     Indication: PSYCHOTIC DISORDER
  64. VITAMIN B12 [Concomitant]
     Active Substance: CYANOCOBALAMIN
     Indication: VITAMIN SUPPLEMENTATION
  65. ELIDEL [Concomitant]
     Active Substance: PIMECROLIMUS
     Indication: DERMATITIS
  66. DUOPA [Suspect]
     Active Substance: CARBIDOPA\LEVODOPA
     Indication: PARKINSON^S DISEASE
     Dosage: 4.63 MG/ML 20 MG/ML
     Route: 050
     Dates: start: 20180320
  67. PYRIDOSTIGMINE BROMIDE. [Concomitant]
     Active Substance: PYRIDOSTIGMINE BROMIDE
     Indication: PRODUCT USED FOR UNKNOWN INDICATION
  68. ANDROGEL [Concomitant]
     Active Substance: TESTOSTERONE
     Indication: PROSTATOMEGALY
  69. PHOSPHATIDYLSERINE [Concomitant]
     Indication: COGNITIVE DISORDER
  70. PROBUTYRATE [Concomitant]
     Indication: PROPHYLAXIS URINARY TRACT INFECTION
  71. COLACE CLEAR [Concomitant]
     Active Substance: DOCUSATE SODIUM
     Indication: ABNORMAL FAECES
  72. PROTHROMBIN COMPLEX CONCENTRATE NOS [Concomitant]
     Active Substance: COAGULATION FACTOR IX HUMAN\COAGULATION FACTOR VII HUMAN\COAGULATION FACTOR X HUMAN\PROTHROMBIN
     Indication: DETOXIFICATION
  73. RENALIX [Concomitant]
     Indication: BLADDER DISORDER

REACTIONS (36)
  - Somnolence [Recovering/Resolving]
  - Device occlusion [Unknown]
  - Cardiac arrest [Recovered/Resolved]
  - Cardiac arrest [Recovered/Resolved]
  - Intestinal obstruction [Recovered/Resolved]
  - Buttock injury [Not Recovered/Not Resolved]
  - Feeling cold [Recovering/Resolving]
  - Unresponsive to stimuli [Recovered/Resolved]
  - Abdominal distension [Recovering/Resolving]
  - Off label use [Not Recovered/Not Resolved]
  - Wrong technique in product usage process [Recovered/Resolved]
  - Delirium [Not Recovered/Not Resolved]
  - Lid sulcus deepened [Recovering/Resolving]
  - Device dislocation [Recovered/Resolved]
  - Speech disorder [Unknown]
  - Skin disorder [Recovering/Resolving]
  - Urinary tract infection [Recovered/Resolved]
  - Device connection issue [Unknown]
  - Device physical property issue [Unknown]
  - Salivary hypersecretion [Recovered/Resolved]
  - Stupor [Recovered/Resolved]
  - Diarrhoea [Recovering/Resolving]
  - Cognitive disorder [Recovering/Resolving]
  - Cold sweat [Recovering/Resolving]
  - Skin discolouration [Recovering/Resolving]
  - Dementia [Recovering/Resolving]
  - Productive cough [Recovered/Resolved]
  - Device kink [Unknown]
  - Swelling face [Not Recovered/Not Resolved]
  - Lethargy [Not Recovered/Not Resolved]
  - Hallucination [Recovered/Resolved]
  - Oesophageal motility disorder [Recovered/Resolved]
  - Tooth abscess [Not Recovered/Not Resolved]
  - Consciousness fluctuating [Not Recovered/Not Resolved]
  - Urine output decreased [Recovering/Resolving]
  - Device alarm issue [Recovered/Resolved]

NARRATIVE: CASE EVENT DATE: 2018
